FAERS Safety Report 9498760 (Version 2)
Quarter: 2013Q3

REPORT INFORMATION
  Report Type: Spontaneous
  Country: US (occurrence: US)
  Receive Date: 20130904
  Receipt Date: 20130926
  Transmission Date: 20140515
  Serious: No
  Sender: FDA-Public Use
  Company Number: US-BAYER-2013-101905

PATIENT
  Age: 32 Year
  Sex: Female

DRUGS (2)
  1. MIRENA [Suspect]
     Indication: CONTRACEPTION
     Dosage: 20 MCG/24HR, CONT
     Route: 015
     Dates: start: 20120201, end: 20120917
  2. OCELLA [Suspect]

REACTIONS (11)
  - Malaise [None]
  - Abdominal pain upper [None]
  - Anger [None]
  - Incorrect dose administered by device [None]
  - Adverse reaction [None]
  - Pelvic pain [None]
  - Groin pain [None]
  - Depression [None]
  - Hypoaesthesia [None]
  - Pain in extremity [None]
  - Acne [None]
